FAERS Safety Report 7788160-6 (Version None)
Quarter: 2011Q3

REPORT INFORMATION
  Report Type: 
  Country: None (occurrence: None)
  Receive Date: 20110929
  Receipt Date: 20110929
  Transmission Date: 20111222
  Serious: Yes (Hospitalization)
  Sender: FDA-Public Use
  Company Number: None

PATIENT
  Age: 82 Year
  Sex: Male
  Weight: 90 kg

DRUGS (1)
  1. CARVEDILOL [Suspect]
     Indication: CARDIAC FAILURE CONGESTIVE
     Dosage: 12.5 MG BID PO
     Route: 048
     Dates: start: 20110510

REACTIONS (3)
  - SYNCOPE [None]
  - BLOOD PRESSURE DECREASED [None]
  - HEART RATE DECREASED [None]
